FAERS Safety Report 8497175 (Version 2)
Quarter: 2013Q3

REPORT INFORMATION
  Report Type: Report from Study
  Country: MX (occurrence: MX)
  Receive Date: 20120406
  Receipt Date: 20130715
  Transmission Date: 20140515
  Serious: Yes (Other)
  Sender: FDA-Public Use
  Company Number: PHHY2012MX029135

PATIENT
  Age: 76 Year
  Sex: Female

DRUGS (2)
  1. ACLASTA [Suspect]
     Indication: OSTEOPOROSIS
     Dosage: 5 MG/100 ML BIANNUALLY
     Route: 042
     Dates: start: 200808
  2. EXFORGE [Suspect]
     Indication: HYPERTENSION
     Dosage: ONCE A DAY
     Dates: start: 200807, end: 2012

REACTIONS (2)
  - Bone fissure [Recovered/Resolved]
  - Fall [Recovered/Resolved]
